FAERS Safety Report 8394697-1 (Version None)
Quarter: 2012Q2

REPORT INFORMATION
  Report Type: 
  Country: None (occurrence: None)
  Receive Date: 20120530
  Receipt Date: 20120515
  Transmission Date: 20120825
  Serious: Yes (Other)
  Sender: FDA-Public Use
  Company Number: US-PFIZER INC-2012111460

PATIENT
  Sex: Male

DRUGS (3)
  1. IBUPROFEN [Suspect]
     Dosage: UNK
  2. BENADRYL [Suspect]
     Dosage: UNK
  3. REMICADE [Suspect]
     Indication: CROHN'S DISEASE
     Dosage: UNK
     Route: 042
     Dates: end: 20120410

REACTIONS (4)
  - URTICARIA [None]
  - PAIN [None]
  - INFUSION RELATED REACTION [None]
  - RASH [None]
